FAERS Safety Report 8303121-6 (Version None)
Quarter: 2012Q2

REPORT INFORMATION
  Report Type: 
  Country: None (occurrence: None)
  Receive Date: 20120423
  Receipt Date: 20120411
  Transmission Date: 20120825
  Serious: Yes (Hospitalization)
  Sender: FDA-Public Use
  Company Number: US-BIOGENIDEC-2012BI004164

PATIENT
  Age: 50 Year
  Sex: Male
  Weight: 90 kg

DRUGS (9)
  1. TRAZODONE HCL [Concomitant]
  2. PROZAC [Concomitant]
  3. BACLOFEN [Concomitant]
  4. TYSABRI [Suspect]
     Indication: MULTIPLE SCLEROSIS
     Route: 042
     Dates: start: 20111219, end: 20111219
  5. VICODIN [Concomitant]
     Route: 048
  6. AMBIEN [Concomitant]
  7. XANAX [Concomitant]
  8. DEPAKOTE [Concomitant]
  9. SOMA [Concomitant]
     Route: 048

REACTIONS (4)
  - INTENTIONAL OVERDOSE [None]
  - DRUG INEFFECTIVE [None]
  - URINARY TRACT INFECTION STAPHYLOCOCCAL [None]
  - SUICIDE ATTEMPT [None]
